FAERS Safety Report 9814372 (Version 1)
Quarter: 2014Q1

REPORT INFORMATION
  Report Type: Spontaneous
  Country: US (occurrence: US)
  Receive Date: 20140113
  Receipt Date: 20140113
  Transmission Date: 20141002
  Serious: Yes (Death)
  Sender: FDA-Public Use
  Company Number: US-PFIZER INC-2014005925

PATIENT
  Age: 54 Year
  Sex: Male

DRUGS (4)
  1. VENLAFAXINE HCL [Suspect]
     Dosage: UNK
  2. ACETAMINOPHEN [Suspect]
     Dosage: UNK
  3. DIPHENHYDRAMINE [Suspect]
     Dosage: UNK
  4. COCAINE [Suspect]
     Dosage: UNK

REACTIONS (1)
  - Completed suicide [Fatal]
